FAERS Safety Report 10977227 (Version 1)
Quarter: 2015Q1

REPORT INFORMATION
  Report Type: Spontaneous
  Country: US (occurrence: None)
  Receive Date: 20150331
  Receipt Date: 20150331
  Transmission Date: 20150721
  Serious: Yes (Life-Threatening, Hospitalization, Other)
  Sender: FDA-Public Use
  Company Number: BD-2015-0239

PATIENT
  Age: 17 Year
  Sex: Male

DRUGS (2)
  1. METOCLOPRAMIDE (METOCLOPRAMIDE) INJECTION, 5MG/ML [Suspect]
     Active Substance: METOCLOPRAMIDE
     Indication: MIGRAINE
  2. KETOROLAC [Concomitant]
     Active Substance: KETOROLAC\KETOROLAC TROMETHAMINE

REACTIONS (7)
  - Phaeochromocytoma crisis [None]
  - Cardiac failure [None]
  - Cardiomyopathy [None]
  - Pulmonary embolism [None]
  - Cardio-respiratory arrest [None]
  - Pulmonary oedema [None]
  - Metabolic acidosis [None]
